FAERS Safety Report 8438700-9 (Version None)
Quarter: 2012Q2

REPORT INFORMATION
  Report Type: 
  Country: None (occurrence: None)
  Receive Date: 20120323
  Receipt Date: 20110617
  Transmission Date: 20120825
  Serious: Yes (Hospitalization)
  Sender: FDA-Public Use
  Company Number: 163-21880-11062572

PATIENT
  Age: 83 Year
  Sex: Female

DRUGS (7)
  1. FUROSEMIDE [Concomitant]
  2. MULTI-VITAMINS [Concomitant]
  3. HUMALOG [Concomitant]
  4. POTASSIUM ACETATE [Concomitant]
  5. PROPRANOLOL [Concomitant]
  6. REVLIMID [Suspect]
     Indication: PRODUCT USED FOR UNKNOWN INDICATION
     Dosage: 10 MG, DAILY FOR 21DAYS, PO
     Route: 048
     Dates: start: 20110513
  7. LOSARTAN POTASSIUM [Concomitant]

REACTIONS (2)
  - NEUTROPENIA [None]
  - PULMONARY OEDEMA [None]
